FAERS Safety Report 5493196-4 (Version None)
Quarter: 2007Q4

REPORT INFORMATION
  Report Type: 
  Country: None (occurrence: None)
  Receive Date: 20071023
  Receipt Date: 20071016
  Transmission Date: 20080405
  Serious: Yes (Other)
  Sender: FDA-Public Use
  Company Number: A0689006A

PATIENT
  Age: 67 Year
  Sex: Male

DRUGS (10)
  1. DIGOXIN [Suspect]
     Indication: DRUG USE FOR UNKNOWN INDICATION
     Route: 048
  2. PACERONE [Suspect]
     Indication: VENTRICULAR TACHYCARDIA
     Route: 048
  3. COUMADIN [Concomitant]
  4. ENALAPRIL MALEATE [Concomitant]
  5. FINASTERIDE [Concomitant]
  6. POTASSIUM CHLORIDE [Concomitant]
  7. LOVASTATIN [Concomitant]
  8. METOPROLOL [Concomitant]
  9. TORSEMIDE [Concomitant]
  10. AMMONIUM LACTATE [Concomitant]

REACTIONS (4)
  - BLOOD THYROID STIMULATING HORMONE DECREASED [None]
  - CARDIOACTIVE DRUG LEVEL INCREASED [None]
  - DRUG INTERACTION POTENTIATION [None]
  - THYROID NEOPLASM [None]
